FAERS Safety Report 4845023-3 (Version None)
Quarter: 2005Q4

REPORT INFORMATION
  Report Type: 
  Country: None (occurrence: None)
  Receive Date: 20051205
  Receipt Date: 20051123
  Transmission Date: 20060501
  Serious: Yes (Hospitalization, Disabling)
  Sender: FDA-Public Use
  Company Number: US-MERCK-0511USA04255

PATIENT
  Age: 65 Year
  Sex: Male
  Weight: 77 kg

DRUGS (4)
  1. VIOXX [Suspect]
     Indication: ARTHRITIS
     Route: 048
     Dates: start: 20010101, end: 20040801
  2. LIPITOR [Concomitant]
     Route: 065
  3. NEXIUM [Concomitant]
     Route: 065
  4. ASPIRIN [Concomitant]
     Route: 065

REACTIONS (3)
  - CARDIAC DISORDER [None]
  - CHEST PAIN [None]
  - MYOCARDIAL INFARCTION [None]
